FAERS Safety Report 7778948-X (Version None)
Quarter: 2011Q3

REPORT INFORMATION
  Report Type: 
  Country: None (occurrence: None)
  Receive Date: 20110926
  Receipt Date: 20110418
  Transmission Date: 20111222
  Serious: No
  Sender: FDA-Public Use
  Company Number: US-BAYER-2011-033830

PATIENT
  Age: 42 Year
  Sex: Male
  Weight: 99.32 kg

DRUGS (2)
  1. METFORMIN HCL [Concomitant]
  2. ULTRAVIST 150 [Suspect]
     Indication: COMPUTERISED TOMOGRAM ABDOMEN
     Dosage: 186 ML, ONCE
     Route: 042
     Dates: start: 20110418, end: 20110418

REACTIONS (1)
  - URTICARIA [None]
